FAERS Safety Report 9359703 (Version 1)
Quarter: 2013Q2

REPORT INFORMATION
  Report Type: Spontaneous
  Country: US (occurrence: US)
  Receive Date: 20130621
  Receipt Date: 20130621
  Transmission Date: 20140414
  Serious: No
  Sender: FDA-Public Use
  Company Number: US-009507513-1306USA008105

PATIENT
  Sex: Male

DRUGS (2)
  1. AZASITE [Suspect]
     Indication: MACULAR DEGENERATION
     Dosage: 1-2 DROPS IN EACH EYE IN BOTH THE MORNING AND THE EVENING
     Route: 047
  2. AZASITE [Suspect]
     Dosage: 1 DROP IN EACH EYE EVERY OTHER DAY
     Route: 047

REACTIONS (4)
  - Inappropriate schedule of drug administration [Unknown]
  - Wrong technique in drug usage process [Unknown]
  - Off label use [Unknown]
  - No adverse event [Unknown]
